FAERS Safety Report 6181139-X (Version None)
Quarter: 2009Q2

REPORT INFORMATION
  Report Type: 
  Country: None (occurrence: None)
  Receive Date: 20090506
  Receipt Date: 20090428
  Transmission Date: 20091009
  Serious: Yes (Other)
  Sender: FDA-Public Use
  Company Number: PHEH2009US04266

PATIENT
  Age: 58 Year
  Sex: Female

DRUGS (2)
  1. GLEEVEC [Suspect]
     Indication: ACUTE LYMPHOCYTIC LEUKAEMIA
     Dosage: UNK
     Dates: start: 20081101
  2. SPRYCEL [Suspect]

REACTIONS (4)
  - BLAST CELL COUNT INCREASED [None]
  - DRUG RESISTANCE [None]
  - LYMPHOCYTE PERCENTAGE DECREASED [None]
  - WHITE BLOOD CELL COUNT DECREASED [None]
